FAERS Safety Report 15730100 (Version 2)
Quarter: 2019Q1

REPORT INFORMATION
  Report Type: Report from Study
  Country: US (occurrence: US)
  Receive Date: 20181217
  Receipt Date: 20190225
  Transmission Date: 20190417
  Serious: No
  Sender: FDA-Public Use
  Company Number: US-SA-2018SA005180

PATIENT
  Age: 82 Year
  Sex: Female

DRUGS (6)
  1. HUMALOG [Concomitant]
     Active Substance: INSULIN LISPRO
     Dosage: UNK UNK,UNK
     Route: 065
  2. INSULIN GLULISINE [Suspect]
     Active Substance: INSULIN GLULISINE
     Dosage: 17 DF, PC
     Route: 058
     Dates: end: 201712
  3. INSULIN GLULISINE [Suspect]
     Active Substance: INSULIN GLULISINE
     Dosage: 15 IU, TID
     Route: 058
  4. TRESIBA [Suspect]
     Active Substance: INSULIN DEGLUDEC
     Dosage: UNK UNK, UNK
  5. INSULIN GLULISINE [Suspect]
     Active Substance: INSULIN GLULISINE
     Indication: DIABETES MELLITUS
     Dosage: 17 DF, PC
     Route: 058
     Dates: start: 201712, end: 201712
  6. NOVOLOG [Concomitant]
     Active Substance: INSULIN ASPART
     Dosage: UNK UNK,UNK
     Route: 065

REACTIONS (8)
  - Tremor [Unknown]
  - Malaise [Unknown]
  - Dizziness [Unknown]
  - Blood glucose increased [Not Recovered/Not Resolved]
  - Underdose [Unknown]
  - Visual impairment [Unknown]
  - Pyrexia [Recovered/Resolved]
  - Blood glucose decreased [Unknown]

NARRATIVE: CASE EVENT DATE: 20180102
